FAERS Safety Report 4267139-5 (Version None)
Quarter: 2004Q1

REPORT INFORMATION
  Report Type: 
  Country: None (occurrence: None)
  Receive Date: 20040107
  Receipt Date: 20031219
  Transmission Date: 20041129
  Serious: Yes (Disabling)
  Sender: FDA-Public Use
  Company Number: A01200305968

PATIENT
  Age: 57 Year
  Sex: Female

DRUGS (1)
  1. PLAQUENIL [Suspect]
     Indication: RHEUMATOID ARTHRITIS
     Dosage: 400 MG, ORAL
     Route: 048
     Dates: start: 20030801, end: 20031015

REACTIONS (4)
  - DEAFNESS NEUROSENSORY [None]
  - GLOSSODYNIA [None]
  - PARAESTHESIA [None]
  - PARAESTHESIA ORAL [None]
